FAERS Safety Report 4486354-9 (Version None)
Quarter: 2004Q4

REPORT INFORMATION
  Report Type: 
  Country: None (occurrence: None)
  Receive Date: 20041021
  Receipt Date: 20041005
  Transmission Date: 20050328
  Serious: Yes (Hospitalization)
  Sender: FDA-Public Use
  Company Number: A02200402681

PATIENT
  Age: 73 Year
  Sex: Male

DRUGS (2)
  1. PLAVIX [Suspect]
     Dosage: ORAL
     Route: 048
  2. OMEPRAZOLE [Suspect]
     Dosage: ORAL
     Route: 048

REACTIONS (2)
  - APLASIA PURE RED CELL [None]
  - NORMOCHROMIC NORMOCYTIC ANAEMIA [None]
